FAERS Safety Report 21747865 (Version 1)
Quarter: 2022Q4

REPORT INFORMATION
  Report Type: Spontaneous
  Country: US (occurrence: None)
  Receive Date: 20221216
  Receipt Date: 20221216
  Transmission Date: 20230112
  Serious: Yes (Life-Threatening, Hospitalization, Disabling)
  Sender: FDA-Public Use
  Company Number: None

PATIENT
  Age: 63 Year
  Sex: Male
  Weight: 89.1 kg

DRUGS (3)
  1. DIAZEPAM [Suspect]
     Active Substance: DIAZEPAM
     Indication: Hyperthyroidism
     Dosage: FREQUENCY : TWICE A DAY;?
     Route: 048
     Dates: start: 20211021
  2. SYNTHROID [Suspect]
     Active Substance: LEVOTHYROXINE SODIUM
  3. ALPRAZOLAM [Suspect]
     Active Substance: ALPRAZOLAM

REACTIONS (16)
  - Restlessness [None]
  - Tremor [None]
  - Insomnia [None]
  - Tachycardia [None]
  - Blood pressure increased [None]
  - Therapy change [None]
  - Loss of personal independence in daily activities [None]
  - Nausea [None]
  - Vomiting [None]
  - Decreased appetite [None]
  - Myalgia [None]
  - Burning sensation [None]
  - Insomnia [None]
  - Gastrointestinal disorder [None]
  - Anxiety [None]
  - Withdrawal syndrome [None]

NARRATIVE: CASE EVENT DATE: 20220225
